FAERS Safety Report 16331188 (Version 3)
Quarter: 2020Q2

REPORT INFORMATION
  Report Type: Report from Study
  Country: US (occurrence: US)
  Receive Date: 20190520
  Receipt Date: 20200611
  Transmission Date: 20200713
  Serious: Yes (Hospitalization, Other)
  Sender: FDA-Public Use
  Company Number: US-ACADIA PHARMACEUTICALS INC.-ACA-2019-012083

PATIENT
  Age: 80 Year
  Sex: Male

DRUGS (1)
  1. NUPLAZID [Suspect]
     Active Substance: PIMAVANSERIN TARTRATE
     Indication: PARKINSON^S DISEASE
     Dosage: 34 MG, QD
     Route: 048
     Dates: start: 20190205

REACTIONS (8)
  - Blood potassium decreased [Unknown]
  - Delusion [Not Recovered/Not Resolved]
  - Dementia [Unknown]
  - Blood magnesium decreased [Unknown]
  - Pneumonia [Recovered/Resolved]
  - Sleep talking [Unknown]
  - Muscle spasms [Unknown]
  - Bronchitis [Unknown]

NARRATIVE: CASE EVENT DATE: 201902
